FAERS Safety Report 15947914 (Version 2)
Quarter: 2019Q1

REPORT INFORMATION
  Report Type: Spontaneous
  Country: JP (occurrence: JP)
  Receive Date: 20190211
  Receipt Date: 20190213
  Transmission Date: 20190417
  Serious: No
  Sender: FDA-Public Use
  Company Number: JP-ROCHE-2256297

PATIENT
  Age: 34 Year
  Sex: Male
  Weight: 80 kg

DRUGS (1)
  1. TAMIFLU [Suspect]
     Active Substance: OSELTAMIVIR PHOSPHATE
     Indication: ANTIVIRAL PROPHYLAXIS
     Dosage: DOSAGE IS UNCERTAIN.?LAST DOSE ON 17/JAN/2019
     Route: 048
     Dates: start: 20190111

REACTIONS (3)
  - Arthralgia [Recovered/Resolved]
  - Pyrexia [Recovered/Resolved]
  - Urinary tract infection [Recovered/Resolved]

NARRATIVE: CASE EVENT DATE: 20190117
